FAERS Safety Report 16228070 (Version 1)
Quarter: 2019Q2

REPORT INFORMATION
  Report Type: Spontaneous
  Country: US (occurrence: US)
  Receive Date: 20190422
  Receipt Date: 20190422
  Transmission Date: 20190711
  Serious: No
  Sender: FDA-Public Use
  Company Number: None

PATIENT
  Age: 46 Year
  Sex: Female
  Weight: 68 kg

DRUGS (1)
  1. LIDOCAINE 1% [Suspect]
     Active Substance: LIDOCAINE
     Indication: BIOPSY BREAST
     Dosage: ?          OTHER FREQUENCY:ONCE;?
     Route: 023

REACTIONS (2)
  - Seizure [None]
  - Loss of consciousness [None]

NARRATIVE: CASE EVENT DATE: 20190417
